FAERS Safety Report 7129704-7 (Version None)
Quarter: 2010Q4

REPORT INFORMATION
  Report Type: 
  Country: None (occurrence: None)
  Receive Date: 20101130
  Receipt Date: 20101103
  Transmission Date: 20110411
  Serious: Yes (Hospitalization, Other)
  Sender: FDA-Public Use
  Company Number: US-AMGEN-QUU432128

PATIENT
  Sex: Female
  Weight: 70.1 kg

DRUGS (32)
  1. NPLATE [Suspect]
     Indication: IDIOPATHIC THROMBOCYTOPENIC PURPURA
     Dosage: 9 A?G/KG, UNK
     Dates: start: 20081013
  2. NPLATE [Suspect]
     Dosage: 9 A?G/KG, UNK
     Dates: start: 20081013
  3. NPLATE [Suspect]
     Dosage: 9 A?G/KG, UNK
     Dates: start: 20081013
  4. NPLATE [Suspect]
     Dosage: 9 A?G/KG, UNK
     Dates: start: 20081013
  5. NPLATE [Suspect]
     Dosage: 9 A?G/KG, UNK
     Dates: start: 20081013
  6. NPLATE [Suspect]
     Dosage: 9 A?G/KG, UNK
     Dates: start: 20081013
  7. NPLATE [Suspect]
     Dosage: 9 A?G/KG, UNK
     Dates: start: 20081013
  8. NPLATE [Suspect]
     Dosage: 9 A?G/KG, UNK
     Dates: start: 20081013
  9. NPLATE [Suspect]
     Dosage: 9 A?G/KG, UNK
     Dates: start: 20081013
  10. NPLATE [Suspect]
     Dosage: 9 A?G/KG, UNK
     Dates: start: 20081013
  11. NPLATE [Suspect]
     Dosage: 9 A?G/KG, UNK
     Dates: start: 20081013
  12. NPLATE [Suspect]
     Dosage: 9 A?G/KG, UNK
     Dates: start: 20081013
  13. NPLATE [Suspect]
     Dosage: 9 A?G/KG, UNK
     Dates: start: 20081013
  14. NPLATE [Suspect]
     Dosage: 9 A?G/KG, UNK
     Dates: start: 20081013
  15. NPLATE [Suspect]
     Dosage: 9 A?G/KG, UNK
     Dates: start: 20081013
  16. NPLATE [Suspect]
     Dosage: 9 A?G/KG, UNK
     Dates: start: 20081013
  17. NPLATE [Suspect]
     Dosage: 9 A?G/KG, UNK
     Dates: start: 20081013
  18. NPLATE [Suspect]
     Dosage: 9 A?G/KG, UNK
     Dates: start: 20081013
  19. NPLATE [Suspect]
     Dosage: 9 A?G/KG, UNK
     Dates: start: 20081013
  20. NPLATE [Suspect]
     Dosage: 9 A?G/KG, UNK
     Dates: start: 20081013
  21. NPLATE [Suspect]
     Dosage: 9 A?G/KG, UNK
     Dates: start: 20081013
  22. NPLATE [Suspect]
     Dosage: 9 A?G/KG, UNK
     Dates: start: 20081013
  23. NPLATE [Suspect]
     Dosage: 9 A?G/KG, UNK
     Dates: start: 20081013
  24. NPLATE [Suspect]
     Dosage: 9 A?G/KG, UNK
     Dates: start: 20081013
  25. NPLATE [Suspect]
     Dosage: 9 A?G/KG, UNK
     Dates: start: 20081013
  26. NPLATE [Suspect]
     Dosage: 9 A?G/KG, UNK
     Dates: start: 20081013
  27. NPLATE [Suspect]
     Dates: start: 20081013, end: 20100809
  28. NPLATE [Suspect]
     Dates: start: 20081013, end: 20100809
  29. GABAPENTIN [Concomitant]
     Dosage: 600 MG, TID
     Route: 048
  30. AMITRIPTYLINE [Concomitant]
     Dosage: 50 MG, QD
     Route: 048
  31. HYDROCODONE BITARTRATE AND ACETAMINOPHEN [Concomitant]
     Dosage: UNK UNK, UNK
     Route: 048
  32. IMMU-G [Concomitant]
     Dosage: 500 MG/KG, UNK
     Route: 042
     Dates: start: 20100722, end: 20100723

REACTIONS (2)
  - PLATELET COUNT DECREASED [None]
  - THERAPEUTIC RESPONSE DECREASED [None]
